FAERS Safety Report 6036757-6 (Version None)
Quarter: 2009Q1

REPORT INFORMATION
  Report Type: 
  Country: None (occurrence: None)
  Receive Date: 20090114
  Receipt Date: 20080402
  Transmission Date: 20090719
  Serious: Yes (Death)
  Sender: FDA-Public Use
  Company Number: US-BRISTOL-MYERS SQUIBB COMPANY-14135974

PATIENT
  Age: 57 Year
  Sex: Male
  Weight: 62 kg

DRUGS (6)
  1. ERBITUX [Suspect]
     Indication: LARYNGEAL CANCER
     Dosage: 1 DOSAGE FORM: 450MG-720MG USUALLY WEEKLY WITH SOME ONE TIME DOSES.
     Route: 042
     Dates: start: 20080101
  2. PACLITAXEL [Suspect]
  3. CISPLATIN [Suspect]
  4. DEXAMETHASONE [Concomitant]
     Indication: PREMEDICATION
  5. ZOFRAN [Concomitant]
     Indication: PREMEDICATION
  6. ONDANSETRON [Concomitant]
     Indication: PREMEDICATION

REACTIONS (1)
  - MALIGNANT NEOPLASM PROGRESSION [None]
